FAERS Safety Report 8620107-2 (Version None)
Quarter: 2012Q3

REPORT INFORMATION
  Report Type: 
  Country: None (occurrence: None)
  Receive Date: 20120824
  Receipt Date: 20120815
  Transmission Date: 20120928
  Serious: Yes (Other)
  Sender: FDA-Public Use
  Company Number: CA-JNJFOC-20120807412

PATIENT
  Sex: Male
  Weight: 128 kg

DRUGS (2)
  1. NORVASC [Concomitant]
     Route: 065
  2. REMICADE [Suspect]
     Indication: ANKYLOSING SPONDYLITIS
     Route: 042
     Dates: start: 20070223

REACTIONS (2)
  - ORAL SURGERY [None]
  - TOOTH EXTRACTION [None]
